FAERS Safety Report 7337097-5 (Version None)
Quarter: 2011Q1

REPORT INFORMATION
  Report Type: 
  Country: None (occurrence: None)
  Receive Date: 20110217
  Receipt Date: 20110209
  Transmission Date: 20110831
  Serious: Yes (Hospitalization)
  Sender: FDA-Public Use
  Company Number: AEDEU201100024

PATIENT
  Age: 54 Year
  Sex: Male
  Weight: 80 kg

DRUGS (3)
  1. EZETROL [Concomitant]
  2. LYRICA [Concomitant]
  3. GAMUNEX [Suspect]
     Indication: DEMYELINATING POLYNEUROPATHY
     Dosage: 80 GM; IV
     Route: 042
     Dates: start: 20100929

REACTIONS (1)
  - DEEP VEIN THROMBOSIS [None]
